FAERS Safety Report 9257327 (Version 1)
Quarter: 2013Q1

REPORT INFORMATION
  Report Type: Spontaneous
  Country: US (occurrence: None)
  Receive Date: 20121212
  Receipt Date: 20121212
  Transmission Date: 20140127
  Serious: No
  Sender: FDA-Public Use
  Company Number: 1208USA001820

PATIENT
  Age: 29 Year
  Sex: Female

DRUGS (3)
  1. PEGINTRON [Suspect]
     Indication: HEPATITIS C
     Dosage: 0.5 UNK,REDIPEN
     Dates: start: 20120705
  2. REBETOL [Suspect]
     Indication: HEPATITIS C
     Dates: start: 20120705
  3. VICTRELIS [Suspect]
     Indication: HEPATITIS C
     Dates: start: 20120805

REACTIONS (13)
  - Drug abuse [None]
  - Eating disorder [None]
  - Hypophagia [None]
  - Memory impairment [None]
  - Memory impairment [None]
  - Dysgeusia [None]
  - Dry mouth [None]
  - Weight decreased [None]
  - Pruritus [None]
  - Fatigue [None]
  - Nausea [None]
  - Asthenia [None]
  - Vomiting [None]
